FAERS Safety Report 4523674-3 (Version None)
Quarter: 2004Q4

REPORT INFORMATION
  Report Type: 
  Country: None (occurrence: None)
  Receive Date: 20041210
  Receipt Date: 20041119
  Transmission Date: 20050328
  Serious: Yes (Hospitalization)
  Sender: FDA-Public Use
  Company Number: US-GLAXOSMITHKLINE-A0534698A

PATIENT
  Age: 15 Year
  Sex: Male

DRUGS (3)
  1. ADVAIR DISKUS 100/50 [Suspect]
     Indication: ASTHMA
     Dosage: 1PUFF TWICE PER DAY
     Route: 055
     Dates: start: 20040101, end: 20041118
  2. SINGULAIR [Concomitant]
     Route: 065
  3. ALBUTEROL [Concomitant]

REACTIONS (7)
  - CHEST PAIN [None]
  - DISORIENTATION [None]
  - FEELING ABNORMAL [None]
  - ILL-DEFINED DISORDER [None]
  - SLUGGISHNESS [None]
  - SOMNOLENCE [None]
  - TREMOR [None]
